FAERS Safety Report 5957395-7 (Version None)
Quarter: 2008Q4

REPORT INFORMATION
  Report Type: 
  Country: None (occurrence: None)
  Receive Date: 20081114
  Receipt Date: 20081027
  Transmission Date: 20090506
  Serious: Yes (Hospitalization)
  Sender: FDA-Public Use
  Company Number: 8039368

PATIENT
  Age: 69 Year
  Sex: Male

DRUGS (2)
  1. PREDNISOLONE [Suspect]
     Indication: MYASTHENIA GRAVIS
     Dosage: 5 MG /D
     Dates: start: 20041001
  2. ALPHA GLUCOSIDASE INHIBITOR [Suspect]
     Indication: DIABETES MELLITUS
     Dates: start: 20060301

REACTIONS (6)
  - CONSTIPATION [None]
  - DIABETES MELLITUS [None]
  - DIABETES MELLITUS INADEQUATE CONTROL [None]
  - GLYCOSYLATED HAEMOGLOBIN INCREASED [None]
  - PNEUMATOSIS INTESTINALIS [None]
  - RECTAL HAEMORRHAGE [None]
